FAERS Safety Report 7292943-9 (Version None)
Quarter: 2011Q1

REPORT INFORMATION
  Report Type: 
  Country: None (occurrence: None)
  Receive Date: 20110215
  Receipt Date: 20110204
  Transmission Date: 20110831
  Serious: Yes (Hospitalization)
  Sender: FDA-Public Use
  Company Number: US-JNJFOC-20110202573

PATIENT
  Sex: Male
  Weight: 59.6 kg

DRUGS (5)
  1. ULTRAM [Concomitant]
  2. ESOMEPRAZOLE [Concomitant]
  3. REMICADE [Suspect]
     Indication: INFLAMMATORY BOWEL DISEASE
     Route: 042
     Dates: start: 20051114, end: 20101218
  4. MESALAMINE [Concomitant]
     Route: 048
  5. AZELASTINE HCL [Concomitant]

REACTIONS (2)
  - INFUSION RELATED REACTION [None]
  - DRUG HYPERSENSITIVITY [None]
